FAERS Safety Report 14459338 (Version 1)
Quarter: 2018Q1

REPORT INFORMATION
  Report Type: Spontaneous
  Country: TR (occurrence: TR)
  Receive Date: 20180130
  Receipt Date: 20180130
  Transmission Date: 20180509
  Serious: Yes (Hospitalization)
  Sender: FDA-Public Use
  Company Number: TR-IMPAX LABORATORIES, INC-2018-IPXL-00224

PATIENT
  Age: 42 Year
  Sex: Female

DRUGS (1)
  1. PYRIDOSTIGMINE BROMIDE. [Suspect]
     Active Substance: PYRIDOSTIGMINE BROMIDE
     Indication: OCULAR MYASTHENIA
     Dosage: UNK, LOW DOSAGE
     Route: 065

REACTIONS (3)
  - Adverse event [Unknown]
  - Disease progression [Recovering/Resolving]
  - Drug ineffective [Unknown]
